FAERS Safety Report 7771096-4 (Version None)
Quarter: 2011Q3

REPORT INFORMATION
  Report Type: 
  Country: None (occurrence: None)
  Receive Date: 20110922
  Receipt Date: 20110913
  Transmission Date: 20111222
  Serious: Yes (Other)
  Sender: FDA-Public Use
  Company Number: AU-PFIZER INC-2011187489

PATIENT
  Age: 42 Year
  Sex: Male

DRUGS (1)
  1. PRISTIQ [Suspect]
     Indication: DEPRESSION
     Dosage: 50 MG, 1X/DAY
     Route: 048
     Dates: start: 20100312, end: 20110717

REACTIONS (9)
  - DEPRESSED MOOD [None]
  - MANIA [None]
  - THINKING ABNORMAL [None]
  - PARANOIA [None]
  - ABNORMAL BEHAVIOUR [None]
  - DELUSION [None]
  - ANGER [None]
  - AGITATION [None]
  - PSYCHOTIC DISORDER [None]
